FAERS Safety Report 11102338 (Version 1)
Quarter: 2015Q2

REPORT INFORMATION
  Report Type: Spontaneous
  Country: US (occurrence: None)
  Receive Date: 20150508
  Receipt Date: 20150508
  Transmission Date: 20150821
  Serious: Yes (Other)
  Sender: FDA-Public Use
  Company Number: None

PATIENT
  Age: 88 Year
  Sex: Female
  Weight: 70.31 kg

DRUGS (2)
  1. LEVOFLOXACIN. [Suspect]
     Active Substance: LEVOFLOXACIN
     Indication: INFECTION
  2. HYDROXYZINE [Concomitant]
     Active Substance: HYDROXYZINE\HYDROXYZINE HYDROCHLORIDE

REACTIONS (9)
  - Rotator cuff syndrome [None]
  - Flatulence [None]
  - Oedema peripheral [None]
  - Gastrointestinal disorder [None]
  - Pain [None]
  - Pyrexia [None]
  - Neck pain [None]
  - Infection [None]
  - Hypoxia [None]

NARRATIVE: CASE EVENT DATE: 20150226
